FAERS Safety Report 6230841-X (Version None)
Quarter: 2009Q2

REPORT INFORMATION
  Report Type: 
  Country: None (occurrence: None)
  Receive Date: 20090616
  Receipt Date: 20090603
  Transmission Date: 20091009
  Serious: Yes (Other)
  Sender: FDA-Public Use
  Company Number: US-PFIZER INC-2009225981

PATIENT
  Sex: Male
  Weight: 55 kg

DRUGS (8)
  1. GEODON [Suspect]
     Dosage: 20 MG, UNK
     Route: 042
  2. ALBUTEROL [Concomitant]
     Dosage: UNK
  3. IRON [Concomitant]
     Dosage: UNK
  4. HYDROCHLOROTHIAZIDE [Concomitant]
     Dosage: UNK
  5. LORTAB [Concomitant]
     Dosage: UNK
  6. LISINOPRIL [Concomitant]
     Dosage: UNK
  7. OMEPRAZOLE [Concomitant]
     Dosage: UNK
  8. ZOFRAN [Concomitant]
     Dosage: UNK

REACTIONS (5)
  - CEREBROVASCULAR ACCIDENT [None]
  - CONFUSIONAL STATE [None]
  - DIZZINESS [None]
  - INCORRECT ROUTE OF DRUG ADMINISTRATION [None]
  - LOGORRHOEA [None]
